FAERS Safety Report 6777221 (Version 4)
Quarter: 2013Q2

REPORT INFORMATION
  Report Type: Spontaneous
  Country: FR (occurrence: FR)
  Receive Date: 20081002
  Receipt Date: 20130418
  Transmission Date: 20140414
  Serious: Yes (Disabling, Other)
  Sender: FDA-Public Use
  Company Number: FR-ALLERGAN-0812211US

PATIENT
  Age: 7 Year
  Sex: Male
  Weight: 18 kg

DRUGS (4)
  1. BOTOX [Suspect]
     Indication: MUSCLE SPASTICITY
     Dosage: 180 UNITS, SINGLE
     Route: 030
     Dates: start: 20080703, end: 20080703
  2. BOTOX [Suspect]
  3. ACTISKENAN [Concomitant]
     Indication: ANALGESIC THERAPY
     Dosage: 5 MG, SINGLE
     Route: 048
     Dates: start: 20080703, end: 20080703
  4. EMLAPATCH [Concomitant]
     Indication: ANAESTHESIA
     Dosage: UNK, SINGLE
     Route: 003
     Dates: start: 20080703, end: 20080703

REACTIONS (3)
  - Rheumatoid arthritis [Recovering/Resolving]
  - Polyarthritis [Not Recovered/Not Resolved]
  - Oedema peripheral [Recovering/Resolving]
